FAERS Safety Report 25011240 (Version 1)
Quarter: 2025Q1

REPORT INFORMATION
  Report Type: Spontaneous
  Country: PT (occurrence: PT)
  Receive Date: 20250226
  Receipt Date: 20250226
  Transmission Date: 20250409
  Serious: Yes (Other)
  Sender: ALEXION PHARMACEUTICALS
  Company Number: None

PATIENT
  Age: 85 Year

DRUGS (1)
  1. SODIUM ZIRCONIUM CYCLOSILICATE [Suspect]
     Active Substance: SODIUM ZIRCONIUM CYCLOSILICATE
     Indication: Hyperkalaemia
     Dosage: 5 G, 1X DAY

REACTIONS (2)
  - Abdominal pain [Recovered/Resolved]
  - Vomiting [Recovered/Resolved]
